FAERS Safety Report 15241781 (Version 1)
Quarter: 2018Q3

REPORT INFORMATION
  Report Type: Spontaneous
  Country: US (occurrence: US)
  Receive Date: 20180712
  Receipt Date: 20180712
  Transmission Date: 20181010
  Serious: No
  Sender: FDA-Public Use
  Company Number: None

PATIENT
  Age: 84 Year
  Sex: Male
  Weight: 79.83 kg

DRUGS (2)
  1. ONE A DAY FOR MEN [Concomitant]
  2. POLYMYXIN B SULFATE AND TRIMETHOPRIM [Suspect]
     Active Substance: POLYMYXIN B SULFATE\TRIMETHOPRIM SULFATE
     Indication: CONJUNCTIVITIS
     Dates: start: 20180511, end: 20180512

REACTIONS (2)
  - Face oedema [None]
  - Eyelid oedema [None]

NARRATIVE: CASE EVENT DATE: 20180511
